FAERS Safety Report 9840788 (Version 1)
Quarter: 2014Q1

REPORT INFORMATION
  Report Type: Spontaneous
  Country: US (occurrence: US)
  Receive Date: 20140124
  Receipt Date: 20140124
  Transmission Date: 20141002
  Serious: Yes (Other)
  Sender: FDA-Public Use
  Company Number: PHEH2014US001413

PATIENT
  Sex: Female

DRUGS (3)
  1. COMBIPATCH [Suspect]
     Dosage: 1 DF, QW2
  2. COMBIPATCH [Suspect]
     Dosage: UNK UKN, UNK
  3. ARMOUR THYROID [Concomitant]
     Dosage: UNK UKN, UNK

REACTIONS (5)
  - Thyroid disorder [Unknown]
  - Osteopenia [Unknown]
  - Osteoarthritis [Unknown]
  - Fatigue [Unknown]
  - Depression [Unknown]
